FAERS Safety Report 10777395 (Version 1)
Quarter: 2015Q1

REPORT INFORMATION
  Report Type: Spontaneous
  Country: US (occurrence: None)
  Receive Date: 20150206
  Receipt Date: 20150206
  Transmission Date: 20150721
  Serious: Yes (Other)
  Sender: FDA-Public Use
  Company Number: None

PATIENT
  Age: 72 Year
  Sex: Female
  Weight: 61.24 kg

DRUGS (9)
  1. NADOLOL. [Concomitant]
     Active Substance: NADOLOL
  2. AMOXYCILLIN AND CLAVULANATE [Suspect]
     Active Substance: AMOXICILLIN\CLAVULANIC ACID
     Indication: BACTERIAL INFECTION
     Dosage: 1 TABLET, TWICE DAILY, TAKEN BY MOUTH
     Route: 048
     Dates: start: 20150120, end: 20150127
  3. NIACIN ER [Concomitant]
     Active Substance: NIACIN
  4. ACETAMINOPHEN. [Concomitant]
     Active Substance: ACETAMINOPHEN
  5. MULTIVITAMIN [Concomitant]
     Active Substance: VITAMINS
  6. AMOXYCILLIN AND CLAVULANATE [Suspect]
     Active Substance: AMOXICILLIN\CLAVULANIC ACID
     Indication: OPPORTUNISTIC INFECTION PROPHYLAXIS
     Dosage: 1 TABLET, TWICE DAILY, TAKEN BY MOUTH
     Route: 048
     Dates: start: 20150120, end: 20150127
  7. IBUPROFEN. [Concomitant]
     Active Substance: IBUPROFEN
  8. VITAMIN C [Concomitant]
     Active Substance: ASCORBIC ACID
  9. LOPERAMID [Concomitant]
     Active Substance: LOPERAMIDE

REACTIONS (7)
  - Feeling abnormal [None]
  - Abnormal faeces [None]
  - Faeces pale [None]
  - Abdominal tenderness [None]
  - Fatigue [None]
  - Thinking abnormal [None]
  - Abdominal pain [None]

NARRATIVE: CASE EVENT DATE: 20150120
